FAERS Safety Report 23067066 (Version 1)
Quarter: 2023Q4

REPORT INFORMATION
  Report Type: Spontaneous
  Country: AT (occurrence: AT)
  Receive Date: 20231016
  Receipt Date: 20231016
  Transmission Date: 20240110
  Serious: Yes (Other)
  Sender: FDA-Public Use
  Company Number: AT-Umedica-000451

PATIENT
  Age: 61 Year
  Sex: Male

DRUGS (3)
  1. SILDENAFIL [Suspect]
     Active Substance: SILDENAFIL
     Indication: Product used for unknown indication
     Route: 065
  2. CLOPIDOGREL [Concomitant]
     Active Substance: CLOPIDOGREL BISULFATE
     Indication: Embolic stroke
     Route: 065
  3. ACETYLIN [Concomitant]
     Indication: Embolic stroke
     Route: 065

REACTIONS (4)
  - Embolic stroke [Recovered/Resolved]
  - Blood creatine phosphokinase increased [Unknown]
  - Intentional product misuse [Unknown]
  - Suicide attempt [Unknown]
